FAERS Safety Report 4469955-3 (Version None)
Quarter: 2004Q3

REPORT INFORMATION
  Report Type: 
  Country: None (occurrence: None)
  Receive Date: 20040920
  Receipt Date: 20040723
  Transmission Date: 20050211
  Serious: No
  Sender: FDA-Public Use
  Company Number: A-US2004-06961

PATIENT
  Age: 67 Year
  Sex: Female

DRUGS (11)
  1. TRACLEER [Suspect]
     Indication: PULMONARY HYPERTENSION
     Dosage: ORAL
     Route: 048
     Dates: start: 20040601
  2. NEURONTIN [Concomitant]
  3. CLARINEX [Concomitant]
  4. FOLIC ACID [Concomitant]
  5. NORVASC [Concomitant]
  6. VICODIN [Concomitant]
  7. AMITRIPTYLINE HCL [Concomitant]
  8. WARFARIN (WARFARIN) [Concomitant]
  9. CYTOTEC [Concomitant]
  10. COZAAR [Concomitant]
  11. GLUCOPHAGE [Concomitant]

REACTIONS (1)
  - BLOOD GLUCOSE INCREASED [None]
